FAERS Safety Report 17847026 (Version 4)
Quarter: 2020Q3

REPORT INFORMATION
  Report Type: Spontaneous
  Country: FR (occurrence: FR)
  Receive Date: 20200601
  Receipt Date: 20200807
  Transmission Date: 20201103
  Serious: Yes (Hospitalization, Other)
  Sender: FDA-Public Use
  Company Number: FR-PFIZER INC-2020212450

PATIENT
  Age: 61 Year
  Sex: Male
  Weight: 69 kg

DRUGS (3)
  1. TAZOCILLINE [Suspect]
     Active Substance: PIPERACILLIN SODIUM\TAZOBACTAM SODIUM
     Dosage: UNK
     Dates: start: 201912
  2. PARACETAMOL [Concomitant]
     Active Substance: ACETAMINOPHEN
     Dosage: UNK
     Dates: start: 201912
  3. AMIKACINE [AMIKACIN] [Concomitant]
     Active Substance: AMIKACIN
     Dosage: 3 DF
     Dates: start: 201912

REACTIONS (16)
  - Arrhythmia [Recovered/Resolved]
  - Hepatic encephalopathy [Unknown]
  - Pneumonia bacterial [Unknown]
  - Febrile neutropenia [Unknown]
  - Hyperthermia [Unknown]
  - Hepatic failure [Unknown]
  - Pulmonary mycosis [Unknown]
  - Hepatitis [Unknown]
  - Drug ineffective [Unknown]
  - Confusional state [Unknown]
  - Febrile bone marrow aplasia [Unknown]
  - Atrial fibrillation [Recovered/Resolved]
  - Pleural effusion [Unknown]
  - Nephritis [Unknown]
  - Somnolence [Unknown]
  - Cellulitis gangrenous [Unknown]

NARRATIVE: CASE EVENT DATE: 201912
